FAERS Safety Report 23404038 (Version 1)
Quarter: 2024Q1

REPORT INFORMATION
  Report Type: Spontaneous
  Country: AT (occurrence: AT)
  Receive Date: 20240116
  Receipt Date: 20240116
  Transmission Date: 20240410
  Serious: Yes (Other)
  Sender: FDA-Public Use
  Company Number: AT-AMGEN-AUTSP2024004837

PATIENT
  Sex: Male

DRUGS (2)
  1. LUMAKRAS [Suspect]
     Active Substance: SOTORASIB
     Indication: Colorectal cancer
     Dosage: UNK
     Route: 065
     Dates: start: 20231214
  2. LUMAKRAS [Suspect]
     Active Substance: SOTORASIB
     Indication: Off label use
     Dosage: UNK, STARTED WITH REDUCED DOSE
     Route: 065

REACTIONS (2)
  - Colorectal cancer metastatic [Unknown]
  - Off label use [Unknown]

NARRATIVE: CASE EVENT DATE: 20231214
